FAERS Safety Report 15737835 (Version 1)
Quarter: 2018Q4

REPORT INFORMATION
  Report Type: Spontaneous
  Country: ES (occurrence: ES)
  Receive Date: 20181219
  Receipt Date: 20181219
  Transmission Date: 20190205
  Serious: Yes (Hospitalization)
  Sender: FDA-Public Use
  Company Number: ES-TEVA-2018-ES-987266

PATIENT
  Age: 88 Year
  Sex: Male

DRUGS (6)
  1. IRBESARTAN (7406A) [Suspect]
     Active Substance: IRBESARTAN
     Indication: HYPERTENSION
     Dosage: 150 MILLIGRAM DAILY;
     Route: 048
     Dates: start: 20141103, end: 20181016
  2. SIMVASTATINA (1023A) [Concomitant]
     Active Substance: SIMVASTATIN
     Dosage: 40 MILLIGRAM DAILY;
     Route: 048
  3. DILTIAZEM (3735A) [Concomitant]
     Route: 048
  4. ZALDIAR 37,5 MG/325 MG COMPRIMIDOS RECUBIERTOS CON PELICULA , 20 COMPR [Concomitant]
     Route: 048
  5. SINTROM [Concomitant]
     Active Substance: ACENOCOUMAROL
     Dosage: SPL
     Route: 048
  6. ESPIRONOLACTONA (326A) [Interacting]
     Active Substance: SPIRONOLACTONE
     Indication: HYPERTENSION
     Dosage: 25 MILLIGRAM DAILY;
     Route: 048
     Dates: start: 20180913, end: 20181016

REACTIONS (3)
  - Drug interaction [Unknown]
  - Hyperkalaemia [Recovered/Resolved]
  - Acute kidney injury [Recovering/Resolving]

NARRATIVE: CASE EVENT DATE: 20181016
